FAERS Safety Report 5193694-7 (Version None)
Quarter: 2006Q4

REPORT INFORMATION
  Report Type: 
  Country: None (occurrence: None)
  Receive Date: 20061221
  Receipt Date: 20061214
  Transmission Date: 20070319
  Serious: Yes (Death, Other)
  Sender: FDA-Public Use
  Company Number: 163-21880-06120093

PATIENT
  Age: 61 Year
  Sex: Male

DRUGS (15)
  1. REVLIMID [Suspect]
     Indication: MYELODYSPLASTIC SYNDROME
     Dosage: 5 MG, 1 IN 1 D, ORAL
     Route: 048
     Dates: start: 20061122, end: 20061201
  2. ISOSORBIDE [Concomitant]
  3. AVAPRO [Concomitant]
  4. ALPRAZOLAM [Concomitant]
  5. FUROSEMIDE [Concomitant]
  6. METOPROLOL SUCCINATE [Concomitant]
  7. LEVOTHROID [Concomitant]
  8. FLUOXETINE [Concomitant]
  9. ALLOPURINOL SODIUM [Concomitant]
  10. TORSEMIDE [Concomitant]
  11. ENALAPRIL MALEATE [Concomitant]
  12. LIPITOR [Concomitant]
  13. NOVOLOG [Concomitant]
  14. PROPOXYPHENE NAPSYLATE AND ACETAMINOPHEN [Concomitant]
  15. NITROQUICK (GLYCERYL TRINITRATE) [Concomitant]

REACTIONS (9)
  - ACUTE RESPIRATORY FAILURE [None]
  - CARDIAC FAILURE CONGESTIVE [None]
  - CARDIO-RESPIRATORY ARREST [None]
  - HYPERHIDROSIS [None]
  - MULTI-ORGAN FAILURE [None]
  - MYELODYSPLASTIC SYNDROME [None]
  - MYOCARDIAL INFARCTION [None]
  - PNEUMONIA [None]
  - THERAPY NON-RESPONDER [None]
